FAERS Safety Report 6204169-8 (Version None)
Quarter: 2009Q2

REPORT INFORMATION
  Report Type: 
  Country: None (occurrence: None)
  Receive Date: 20090527
  Receipt Date: 20090520
  Transmission Date: 20091009
  Serious: No
  Sender: FDA-Public Use
  Company Number: US-MERCK-0905USA00977

PATIENT
  Age: 73 Year
  Sex: Male
  Weight: 59 kg

DRUGS (14)
  1. PRIMAXIN [Suspect]
     Indication: CHOLANGITIS
     Route: 042
     Dates: start: 20090428, end: 20090428
  2. PRIMAXIN [Suspect]
     Route: 042
     Dates: start: 20090429, end: 20090504
  3. ISENTRESS [Concomitant]
     Route: 048
  4. EUCERIN LOTION [Concomitant]
     Route: 061
  5. BRIMONIDINE TARTRATE [Concomitant]
     Route: 047
  6. CLOBETASOL PROPIONATE [Concomitant]
     Route: 065
  7. DARUNAVIR [Concomitant]
     Route: 048
  8. HYPROMELLOSE [Concomitant]
     Route: 047
  9. MAGNESIUM SULFATE [Concomitant]
     Route: 065
  10. METOPROLOL TARTRATE [Concomitant]
     Route: 048
  11. PANTOPRAZOLE [Concomitant]
     Route: 042
  12. RITONAVIR [Concomitant]
     Route: 048
  13. TRAVOPROST [Concomitant]
     Route: 047
  14. TRIAMCINOLONE [Concomitant]
     Route: 065

REACTIONS (1)
  - NEUROTOXICITY [None]
